FAERS Safety Report 9921470 (Version 2)
Quarter: 2014Q2

REPORT INFORMATION
  Report Type: Report from Study
  Country: AU (occurrence: AU)
  Receive Date: 20140225
  Receipt Date: 20140428
  Transmission Date: 20141212
  Serious: Yes (Hospitalization, Other)
  Sender: FDA-Public Use
  Company Number: PHHY2014AU022151

PATIENT
  Age: 42 Year
  Sex: Female

DRUGS (12)
  1. CLOZARIL [Suspect]
     Indication: SCHIZOPHRENIA
     Dosage: UNK
     Dates: start: 20070323
  2. CLOZARIL [Suspect]
     Dosage: 550 MG, UNK ( 100 MG 5 TABLET AND 25 MG 2 TABLETS)
     Route: 048
  3. CLOPINE [Suspect]
     Indication: SCHIZOPHRENIA
     Dosage: 550 MG, UNK ( 100 MG 5 TABLET AND 25 MG 2 TABLETS) AT NIGHT
     Route: 048
  4. NEXIAM [Concomitant]
     Indication: GASTROOESOPHAGEAL REFLUX DISEASE
     Dosage: 1 DF, (SWALLOW 1 TABLET)
     Route: 048
  5. ZYPREXA [Concomitant]
     Indication: SCHIZOPHRENIA
     Dosage: 1 DF, UNK
  6. DYMADON P [Concomitant]
     Indication: PAIN
     Dosage: 2 DF, TID
  7. CENTRUM [Concomitant]
     Indication: VITAMIN SUPPLEMENTATION
     Dosage: 1 DF, UNK (1 TABLET IN MORNING)
  8. CENTRUM [Concomitant]
     Indication: MINERAL SUPPLEMENTATION
  9. ATORVASTATIN PFIZER [Concomitant]
     Indication: LIVER FUNCTION TEST ABNORMAL
     Dosage: 1 DF, ONCE EACH DAY
  10. OLMETEC [Concomitant]
     Dosage: 1 DF,ONCE EACH DAY
  11. DITROPAN [Concomitant]
     Dosage: 1 DF, 1 TABLET EACH DAY
  12. ALTVEN [Concomitant]
     Dosage: 1 DF, ONCE EACH DAY

REACTIONS (29)
  - Septic shock [Unknown]
  - Pseudomembranous colitis [Unknown]
  - Clostridium difficile colitis [Unknown]
  - Decreased appetite [Unknown]
  - Abdominal distension [Unknown]
  - Malaise [Unknown]
  - Abdominal pain [Unknown]
  - White blood cell count increased [Not Recovered/Not Resolved]
  - Neutrophil count increased [Not Recovered/Not Resolved]
  - Tenderness [Unknown]
  - Balance disorder [Unknown]
  - Hypotension [Unknown]
  - Confusional state [Unknown]
  - Diarrhoea [Unknown]
  - Lower respiratory tract infection [Unknown]
  - Gastrointestinal necrosis [Unknown]
  - Abdominal adhesions [Unknown]
  - Gamma-glutamyltransferase increased [Unknown]
  - Blood urea increased [Unknown]
  - Haematocrit decreased [Recovered/Resolved]
  - Red blood cell count decreased [Recovered/Resolved]
  - Blood calcium increased [Unknown]
  - Blood phosphorus increased [Unknown]
  - Acidosis [Unknown]
  - Blood alkaline phosphatase increased [Unknown]
  - Platelet count increased [Not Recovered/Not Resolved]
  - Haemoglobin decreased [Unknown]
  - Monocyte count increased [Recovered/Resolved]
  - Agitation [Unknown]
